FAERS Safety Report 8601858-2 (Version None)
Quarter: 2012Q3

REPORT INFORMATION
  Report Type: 
  Country: None (occurrence: None)
  Receive Date: 20120817
  Receipt Date: 20120606
  Transmission Date: 20120928
  Serious: No
  Sender: FDA-Public Use
  Company Number: US-BRISTOL-MYERS SQUIBB COMPANY-16572836

PATIENT
  Sex: Female

DRUGS (3)
  1. PROTONIX [Concomitant]
     Dates: end: 20120511
  2. SUCRALFATE [Concomitant]
  3. SPRYCEL [Suspect]

REACTIONS (1)
  - GASTROOESOPHAGEAL REFLUX DISEASE [None]
